APPROVED DRUG PRODUCT: MYCOPHENOLATE MOFETIL HYDROCHLORIDE
Active Ingredient: MYCOPHENOLATE MOFETIL HYDROCHLORIDE
Strength: 500MG/VIAL
Dosage Form/Route: INJECTABLE;INJECTION
Application: A203859 | Product #001 | TE Code: AP
Applicant: MYLAN LABORATORIES LTD
Approved: Mar 31, 2017 | RLD: No | RS: No | Type: RX